FAERS Safety Report 6528071-7 (Version None)
Quarter: 2010Q1

REPORT INFORMATION
  Report Type: 
  Country: None (occurrence: None)
  Receive Date: 20100105
  Receipt Date: 20100105
  Transmission Date: 20100710
  Serious: No
  Sender: FDA-Public Use
  Company Number: None

PATIENT
  Age: 57 Year
  Sex: Male

DRUGS (1)
  1. CHLORHEXIDINE GLUCONATE [Suspect]
     Indication: PREOPERATIVE CARE
     Dosage: ONCE TOP
     Route: 061
     Dates: start: 20091129, end: 20091129

REACTIONS (3)
  - RASH ERYTHEMATOUS [None]
  - RASH PRURITIC [None]
  - SKIN IRRITATION [None]
